FAERS Safety Report 5262420-5 (Version None)
Quarter: 2007Q1

REPORT INFORMATION
  Report Type: 
  Country: None (occurrence: None)
  Receive Date: 20061219
  Receipt Date: 20060627
  Transmission Date: 20070707
  Serious: No
  Sender: FDA-Public Use
  Company Number: 35735

PATIENT

DRUGS (2)
  1. BSS PLUS [Suspect]
     Indication: SURGERY
     Dates: start: 20060621, end: 20060621
  2. DUOVISC [Suspect]
     Indication: SURGERY
     Dates: start: 20060621, end: 20060621

REACTIONS (1)
  - ANTERIOR CHAMBER INFLAMMATION [None]
